FAERS Safety Report 4969081-0 (Version None)
Quarter: 2006Q2

REPORT INFORMATION
  Report Type: 
  Country: None (occurrence: None)
  Receive Date: 20060411
  Receipt Date: 20060301
  Transmission Date: 20061013
  Serious: Yes (Hospitalization)
  Sender: FDA-Public Use
  Company Number: US-MERCK-0603USA00470

PATIENT
  Age: 71 Year
  Sex: Female
  Weight: 68 kg

DRUGS (4)
  1. VIOXX [Suspect]
     Indication: ARTHRITIS
     Route: 048
     Dates: start: 20030101, end: 20041001
  2. VIOXX [Suspect]
     Route: 048
     Dates: start: 20010115, end: 20011219
  3. VIOXX [Suspect]
     Route: 048
     Dates: start: 20010115, end: 20011219
  4. VIOXX [Suspect]
     Route: 048
     Dates: start: 20030101, end: 20041001

REACTIONS (9)
  - CARPAL TUNNEL SYNDROME [None]
  - CEREBROVASCULAR ACCIDENT [None]
  - COCCIDIOIDOMYCOSIS [None]
  - COLONIC POLYP [None]
  - CONJUNCTIVAL HAEMORRHAGE [None]
  - HYPOKALAEMIA [None]
  - JOINT SPRAIN [None]
  - LACUNAR INFARCTION [None]
  - NORMOCHROMIC NORMOCYTIC ANAEMIA [None]
